FAERS Safety Report 9916918 (Version 2)
Quarter: 2014Q1

REPORT INFORMATION
  Report Type: Spontaneous
  Country: FJ (occurrence: FM)
  Receive Date: 20140221
  Receipt Date: 20140228
  Transmission Date: 20141002
  Serious: Yes (Other)
  Sender: FDA-Public Use
  Company Number: FJ-PFIZER INC-2014049532

PATIENT
  Sex: Female

DRUGS (1)
  1. DEPO-PROVERA [Suspect]
     Indication: CONTRACEPTION
     Dosage: UNK

REACTIONS (4)
  - Drug ineffective [Unknown]
  - Unintended pregnancy [Unknown]
  - Oligohydramnios [Unknown]
  - Breech presentation [Unknown]
